FAERS Safety Report 10922254 (Version 1)
Quarter: 2015Q1

REPORT INFORMATION
  Report Type: Spontaneous
  Country: BR (occurrence: BR)
  Receive Date: 20150317
  Receipt Date: 20150317
  Transmission Date: 20150721
  Serious: Yes (Other)
  Sender: FDA-Public Use
  Company Number: BR-ASTRAZENECA-2015SE22725

PATIENT
  Age: 68 Year
  Sex: Male

DRUGS (15)
  1. HYDROCHLOROTHIAZIDE. [Suspect]
     Active Substance: HYDROCHLOROTHIAZIDE
     Indication: BLOOD PRESSURE ABNORMAL
     Route: 048
     Dates: start: 2008
  2. FINASTERIDE. [Concomitant]
     Active Substance: FINASTERIDE
     Indication: PROSTATIC DISORDER
     Route: 048
     Dates: start: 2010
  3. SYMBICORT [Suspect]
     Active Substance: BUDESONIDE\FORMOTEROL FUMARATE DIHYDRATE
     Indication: EMPHYSEMA
     Dosage: FORASEQ
     Route: 055
  4. ATROVENT [Concomitant]
     Active Substance: IPRATROPIUM BROMIDE
     Indication: DYSPNOEA
     Dosage: AS REQUIRED
  5. SYMBICORT [Suspect]
     Active Substance: BUDESONIDE\FORMOTEROL FUMARATE DIHYDRATE
     Indication: DYSPNOEA
     Dosage: FORASEQ
     Route: 055
  6. ENALAPRIL [Concomitant]
     Active Substance: ENALAPRIL
     Indication: BLOOD PRESSURE ABNORMAL
     Dosage: EVERY MORNING
     Route: 048
     Dates: start: 2008
  7. UNSPECIFIED ANTI-ALLERGIC [Concomitant]
     Indication: HYPERSENSITIVITY
     Dates: start: 2012
  8. BAMBEC [Concomitant]
     Indication: DYSPNOEA
     Dosage: AS REQUIRED
  9. SYMBICORT [Suspect]
     Active Substance: BUDESONIDE\FORMOTEROL FUMARATE DIHYDRATE
     Indication: EMPHYSEMA
     Dosage: ALENIA : 12/400MCG THREE TIMES A DAY
     Route: 055
     Dates: start: 2009, end: 201503
  10. SYMBICORT [Suspect]
     Active Substance: BUDESONIDE\FORMOTEROL FUMARATE DIHYDRATE
     Indication: DYSPNOEA
     Dosage: 320/9MCG THREE TIMES A DAY
     Route: 055
     Dates: start: 201503
  11. SPIRIVA [Suspect]
     Active Substance: TIOTROPIUM BROMIDE MONOHYDRATE
     Indication: EMPHYSEMA
     Route: 065
  12. BEROTEC [Concomitant]
     Active Substance: FENOTEROL HYDROBROMIDE
     Indication: DYSPNOEA
     Dosage: AS REQUIRED
  13. ACETYLCYSTEINE. [Concomitant]
     Active Substance: ACETYLCYSTEINE
     Indication: DYSPNOEA
     Dosage: AS REQUIRED
  14. SYMBICORT [Suspect]
     Active Substance: BUDESONIDE\FORMOTEROL FUMARATE DIHYDRATE
     Indication: DYSPNOEA
     Dosage: ALENIA : 12/400MCG THREE TIMES A DAY
     Route: 055
     Dates: start: 2009, end: 201503
  15. SYMBICORT [Suspect]
     Active Substance: BUDESONIDE\FORMOTEROL FUMARATE DIHYDRATE
     Indication: EMPHYSEMA
     Dosage: 320/9MCG THREE TIMES A DAY
     Route: 055
     Dates: start: 201503

REACTIONS (8)
  - Hypersensitivity [Unknown]
  - Prostatic disorder [Recovered/Resolved]
  - Cataract [Recovered/Resolved]
  - Muscle spasms [Not Recovered/Not Resolved]
  - Diverticulitis [Not Recovered/Not Resolved]
  - Emphysema [Recovered/Resolved]
  - Drug dose omission [Not Recovered/Not Resolved]
  - Drug ineffective [Recovered/Resolved]

NARRATIVE: CASE EVENT DATE: 2009
